FAERS Safety Report 9773070 (Version 2)
Quarter: 2013Q4

REPORT INFORMATION
  Report Type: Spontaneous
  Country: US (occurrence: US)
  Receive Date: 20131219
  Receipt Date: 20131226
  Transmission Date: 20140711
  Serious: Yes (Other)
  Sender: FDA-Public Use
  Company Number: US-PFIZER INC-2013363756

PATIENT
  Age: 50 Year
  Sex: Female

DRUGS (1)
  1. LYRICA [Suspect]
     Dosage: UNK

REACTIONS (7)
  - Bipolar disorder [Unknown]
  - Bipolar I disorder [Unknown]
  - Anxiety disorder [Unknown]
  - Convulsion [Unknown]
  - Transient ischaemic attack [Unknown]
  - Drug withdrawal syndrome [Unknown]
  - Vomiting [Unknown]
